FAERS Safety Report 18200417 (Version 4)
Quarter: 2020Q4

REPORT INFORMATION
  Report Type: Other
  Country: JP (occurrence: JP)
  Receive Date: 20200827
  Receipt Date: 20201106
  Transmission Date: 20210113
  Serious: Yes (Death, Hospitalization, Other)
  Sender: FDA-Public Use
  Company Number: JP-ROCHE-2578139

PATIENT
  Age: 67 Year
  Sex: Male
  Weight: 59 kg

DRUGS (11)
  1. DOXORUBICIN HYDROCHLORIDE. [Concomitant]
     Active Substance: DOXORUBICIN HYDROCHLORIDE
  2. BENDAMUSTINE HYDROCHLORIDE. [Concomitant]
     Active Substance: BENDAMUSTINE HYDROCHLORIDE
  3. ETOPOSIDE. [Concomitant]
     Active Substance: ETOPOSIDE
  4. ZEVALIN [Concomitant]
     Active Substance: IBRITUMOMAB TIUXETAN
  5. CYTARABINE. [Concomitant]
     Active Substance: CYTARABINE
  6. CYCLOPHOSPHAMIDE MONOHYDRATE [Concomitant]
     Active Substance: CYCLOPHOSPHAMIDE
  7. PREDNISOLONE. [Concomitant]
     Active Substance: PREDNISOLONE
  8. DEXAMETHASONE. [Concomitant]
     Active Substance: DEXAMETHASONE
  9. RITUXIMAB. [Suspect]
     Active Substance: RITUXIMAB
     Indication: B-CELL LYMPHOMA
     Route: 041
  10. VINCRISTINE SULFATE. [Concomitant]
     Active Substance: VINCRISTINE SULFATE
  11. OBINUTUZUMAB. [Suspect]
     Active Substance: OBINUTUZUMAB
     Indication: B-CELL LYMPHOMA
     Route: 042
     Dates: start: 20190808, end: 20190808

REACTIONS (4)
  - Death [Fatal]
  - Therapeutic product effect incomplete [Unknown]
  - Pseudomonas infection [Recovering/Resolving]
  - Myelosuppression [Unknown]

NARRATIVE: CASE EVENT DATE: 20190809
